FAERS Safety Report 7059647-9 (Version None)
Quarter: 2010Q4

REPORT INFORMATION
  Report Type: 
  Country: None (occurrence: None)
  Receive Date: 20101025
  Receipt Date: 20101012
  Transmission Date: 20110411
  Serious: Yes (Hospitalization)
  Sender: FDA-Public Use
  Company Number: US-ELI_LILLY_AND_COMPANY-US201009003251

PATIENT
  Sex: Male

DRUGS (3)
  1. ZYPREXA RELPREVV [Suspect]
     Indication: SCHIZOPHRENIA
     Dosage: 1 D/F, UNKNOWN
     Route: 030
     Dates: start: 20100831
  2. ZYPREXA [Suspect]
     Dosage: 5 MG, EACH EVENING
     Route: 048
  3. METFORMIN [Concomitant]
     Dosage: 500 MG, 2/D

REACTIONS (2)
  - AGGRESSION [None]
  - SCHIZOPHRENIA, UNDIFFERENTIATED TYPE [None]
